FAERS Safety Report 7624277-4 (Version None)
Quarter: 2011Q3

REPORT INFORMATION
  Report Type: 
  Country: None (occurrence: None)
  Receive Date: 20110720
  Receipt Date: 20110718
  Transmission Date: 20111222
  Serious: Yes (Other)
  Sender: FDA-Public Use
  Company Number: CHPA2011US09509

PATIENT
  Age: 63 Year
  Sex: Female
  Weight: 95.238 kg

DRUGS (3)
  1. ALEVE [Suspect]
     Dosage: UNK, UNK
     Dates: end: 20110101
  2. VOLTAREN [Suspect]
     Indication: MUSCULOSKELETAL PAIN
     Dosage: A LITTLE BIT, ONCE A DAY
     Route: 061
     Dates: start: 20110301, end: 20110401
  3. VOLTAREN [Suspect]
     Indication: PAIN IN EXTREMITY

REACTIONS (5)
  - ANAEMIA [None]
  - WRONG TECHNIQUE IN DRUG USAGE PROCESS [None]
  - DRUG INEFFECTIVE FOR UNAPPROVED INDICATION [None]
  - DRUG ADMINISTERED AT INAPPROPRIATE SITE [None]
  - HAEMOGLOBIN DECREASED [None]
